FAERS Safety Report 24584570 (Version 1)
Quarter: 2024Q4

REPORT INFORMATION
  Report Type: Spontaneous
  Country: US (occurrence: None)
  Receive Date: 20241105
  Receipt Date: 20241105
  Transmission Date: 20250115
  Serious: No
  Sender: Public
  Company Number: None

PATIENT
  Age: 73 Year
  Sex: Female
  Weight: 102.06 kg

DRUGS (7)
  1. SPIRONOLACTONE [Suspect]
     Active Substance: SPIRONOLACTONE
     Indication: Blood pressure measurement
     Dosage: 1 TABLET ONCE A DAY TKEN BY MOUTH
     Route: 048
     Dates: start: 20240804
  2. AMLODIPINE BESYLATE [Suspect]
     Active Substance: AMLODIPINE BESYLATE
     Indication: Blood pressure measurement
     Dosage: 1 TABLET ONCE A DY TAKEN BY MOUTH
     Dates: start: 20240206
  3. NIFEDIPINE [Suspect]
     Active Substance: NIFEDIPINE
  4. LOSARTAN [Concomitant]
     Active Substance: LOSARTAN
  5. VITAMINS D/C/CALC/MAG/ [Concomitant]
  6. TYLENOL [Concomitant]
     Active Substance: ACETAMINOPHEN
  7. ASPIRIN [Concomitant]
     Active Substance: ASPIRIN

REACTIONS (5)
  - Malaise [None]
  - Hypertension [None]
  - Drug ineffective [None]
  - Therapy cessation [None]
  - Fear of death [None]

NARRATIVE: CASE EVENT DATE: 20240204
